FAERS Safety Report 10644931 (Version 1)
Quarter: 2014Q4

REPORT INFORMATION
  Report Type: Report from Study
  Country: DE (occurrence: DE)
  Receive Date: 20141211
  Receipt Date: 20141211
  Transmission Date: 20150529
  Serious: Yes (Hospitalization)
  Sender: FDA-Public Use
  Company Number: DE-AMGEN-DEUNI2014095338

PATIENT
  Age: 80 Year
  Sex: Male

DRUGS (2)
  1. METHOTREXATE SODIUM. [Concomitant]
     Active Substance: METHOTREXATE SODIUM
     Dosage: 10 MG, WEEKLY
  2. ETANERCEPT [Suspect]
     Active Substance: ETANERCEPT
     Indication: PRODUCT USED FOR UNKNOWN INDICATION
     Dosage: 50 MG, QWK
     Route: 065
     Dates: start: 20140620

REACTIONS (5)
  - Arteriosclerosis [Not Recovered/Not Resolved]
  - Pulmonary mass [Not Recovered/Not Resolved]
  - Diabetic foot [Not Recovered/Not Resolved]
  - Psoas abscess [Not Recovered/Not Resolved]
  - Diabetic foot infection [Not Recovered/Not Resolved]

NARRATIVE: CASE EVENT DATE: 20140625
